FAERS Safety Report 6209562-5 (Version None)
Quarter: 2009Q2

REPORT INFORMATION
  Report Type: 
  Country: None (occurrence: None)
  Receive Date: 20090601
  Receipt Date: 20090520
  Transmission Date: 20091009
  Serious: Yes (Other)
  Sender: FDA-Public Use
  Company Number: DK-JNJFOC-20090505093

PATIENT
  Sex: Female

DRUGS (5)
  1. REMICADE [Suspect]
     Indication: RHEUMATOID ARTHRITIS
     Route: 042
  2. PREDNISOLONE [Concomitant]
  3. METHOTREXATE [Concomitant]
  4. SULFASALAZIN [Concomitant]
     Route: 048
  5. HYDROXYCHLOROQUIN [Concomitant]

REACTIONS (4)
  - DYSPNOEA [None]
  - HOT FLUSH [None]
  - PALPITATIONS [None]
  - PRURITUS [None]
